FAERS Safety Report 10195967 (Version 1)
Quarter: 2014Q2

REPORT INFORMATION
  Report Type: Report from Study
  Country: US (occurrence: US)
  Receive Date: 20140527
  Receipt Date: 20140527
  Transmission Date: 20141212
  Serious: Yes (Hospitalization)
  Sender: FDA-Public Use
  Company Number: PHEH2014US010579

PATIENT
  Sex: Male
  Weight: 65.76 kg

DRUGS (9)
  1. ZOMETA [Suspect]
     Dosage: 1 DF, UNK
  2. DEXAMETASON [Concomitant]
     Dosage: UNK UKN, UNK
  3. ACYCLOVIR [Concomitant]
     Dosage: UNK UKN, UNK
  4. HYDROCODONE/APAP [Concomitant]
     Dosage: UNK UKN, UNK
  5. METOPROLOL TARTRATE [Concomitant]
     Dosage: UNK UKN, UNK
  6. PROTEIN SUPPLEMENTS [Concomitant]
     Dosage: UNK UKN, UNK
  7. VITAMIN D [Concomitant]
     Dosage: UNK UKN, UNK
  8. ASPIRIN LOW [Concomitant]
     Dosage: UNK UKN, UNK
  9. REVLIMID [Concomitant]
     Dosage: UNK UKN, UNK

REACTIONS (4)
  - Pneumonia [Unknown]
  - Candida infection [Unknown]
  - Weight decreased [Unknown]
  - Pain [Unknown]
